FAERS Safety Report 10284040 (Version 2)
Quarter: 2014Q3

REPORT INFORMATION
  Report Type: Spontaneous
  Country: JP (occurrence: JP)
  Receive Date: 20140708
  Receipt Date: 20140708
  Transmission Date: 20150326
  Serious: Yes (Other)
  Sender: FDA-Public Use
  Company Number: JP-PFIZER INC-2014176650

PATIENT
  Age: 7 Decade
  Sex: Male

DRUGS (2)
  1. ZITHROMAC [Suspect]
     Active Substance: AZITHROMYCIN DIHYDRATE
     Indication: PNEUMONIA
     Dosage: 500 MG, 1X/DAY
     Route: 041
  2. MEROPENEM. [Concomitant]
     Active Substance: MEROPENEM
     Indication: PNEUMONIA
     Dosage: UNK
     Route: 041

REACTIONS (2)
  - Transaminases increased [Recovered/Resolved]
  - Infectious pleural effusion [Not Recovered/Not Resolved]
